FAERS Safety Report 5034121-X (Version None)
Quarter: 2006Q2

REPORT INFORMATION
  Report Type: 
  Country: None (occurrence: None)
  Receive Date: 20060626
  Receipt Date: 20060619
  Transmission Date: 20061013
  Serious: Yes (Hospitalization)
  Sender: FDA-Public Use
  Company Number: FR-AVENTIS-200612237FR

PATIENT
  Age: 72 Year
  Sex: Female

DRUGS (6)
  1. LOVENOX [Suspect]
     Indication: THROMBOSIS PROPHYLAXIS
     Route: 042
     Dates: start: 20060322, end: 20060421
  2. LOVENOX [Suspect]
     Indication: KNEE ARTHROPLASTY
     Route: 042
     Dates: start: 20060322, end: 20060421
  3. PARACETAMOL [Concomitant]
     Route: 048
     Dates: start: 20060329
  4. TOPALGIC [Concomitant]
     Route: 048
     Dates: start: 20060329, end: 20060428
  5. STILNOX [Concomitant]
     Route: 048
  6. ZOCOR [Concomitant]
     Route: 048

REACTIONS (3)
  - BICYTOPENIA [None]
  - LEUKOPENIA [None]
  - THROMBOCYTOPENIA [None]
